FAERS Safety Report 5150485-0 (Version None)
Quarter: 2006Q4

REPORT INFORMATION
  Report Type: 
  Country: None (occurrence: None)
  Receive Date: 20061114
  Receipt Date: 20060712
  Transmission Date: 20070319
  Serious: Yes (Other)
  Sender: FDA-Public Use
  Company Number: US-GLAXOSMITHKLINE-A0612175A

PATIENT
  Age: 75 Year
  Sex: Female

DRUGS (9)
  1. LAMICTAL [Suspect]
     Indication: BIPOLAR DISORDER
     Route: 048
     Dates: start: 20061001
  2. PAXIL [Suspect]
     Indication: DEPRESSION
     Dosage: 40MG PER DAY
     Dates: start: 19980101, end: 20040101
  3. WELLBUTRIN [Suspect]
  4. KLONOPIN [Concomitant]
  5. DILTIAZEM HCL [Concomitant]
  6. RANITIDINE [Concomitant]
  7. VITAMIN B-12 [Concomitant]
  8. ASPIRIN [Concomitant]
  9. ZETIA [Concomitant]

REACTIONS (19)
  - ABNORMAL DREAMS [None]
  - ANGER [None]
  - ANXIETY [None]
  - BIPOLAR DISORDER [None]
  - DEPRESSED MOOD [None]
  - DEPRESSION [None]
  - DRUG INEFFECTIVE [None]
  - ERYTHEMA [None]
  - IMPULSIVE BEHAVIOUR [None]
  - MENTAL STATUS CHANGES [None]
  - NIGHT SWEATS [None]
  - NIGHTMARE [None]
  - NOCTURIA [None]
  - RASH MACULAR [None]
  - SKIN ATROPHY [None]
  - SKIN DISORDER [None]
  - SKIN EXFOLIATION [None]
  - VASODILATATION [None]
  - WEIGHT DECREASED [None]
